FAERS Safety Report 8003683-2 (Version None)
Quarter: 2011Q4

REPORT INFORMATION
  Report Type: 
  Country: None (occurrence: None)
  Receive Date: 20111222
  Receipt Date: 20111218
  Transmission Date: 20120403
  Serious: Yes (Hospitalization)
  Sender: FDA-Public Use
  Company Number: US-ABBOTT-11P-163-0884386-00

PATIENT
  Sex: Male

DRUGS (17)
  1. DONEPEZIL HCL [Concomitant]
     Indication: MEMORY IMPAIRMENT
     Dates: start: 20111101
  2. CALCITRIOL [Concomitant]
     Indication: OSTEOPOROSIS
  3. MELOXICAM [Concomitant]
     Indication: PRODUCT USED FOR UNKNOWN INDICATION
  4. PROMETHAZINE [Concomitant]
     Indication: NAUSEA
  5. QUINAPRIL [Concomitant]
     Indication: HYPERTENSION
  6. HYDROCODONE [Concomitant]
     Indication: PSORIATIC ARTHROPATHY
  7. FLEXERIL [Concomitant]
     Indication: MUSCLE SPASMS
  8. FUROSEMIDE [Concomitant]
     Indication: HYPERTENSION
  9. ROPINIROLE [Concomitant]
     Indication: MYALGIA
  10. FENOFIBRATE [Concomitant]
     Indication: BLOOD CHOLESTEROL INCREASED
  11. FLUOXETINE [Concomitant]
     Indication: DEPRESSION
  12. ALENDRONATE SODIUM [Concomitant]
     Indication: OSTEOPOROSIS
  13. DOXAZYN [Concomitant]
     Indication: HYPERTENSION
  14. HUMIRA [Suspect]
     Indication: PSORIATIC ARTHROPATHY
     Dates: start: 20091101, end: 20111101
  15. METHOTREXATE [Concomitant]
     Indication: PSORIATIC ARTHROPATHY
  16. CLONIDINE [Concomitant]
     Indication: HYPERTENSION
  17. FOLIC ACID [Concomitant]
     Indication: VITAMIN SUPPLEMENTATION

REACTIONS (12)
  - NIGHT SWEATS [None]
  - ASTHENIA [None]
  - FEELING COLD [None]
  - TOTAL LUNG CAPACITY ABNORMAL [None]
  - FATIGUE [None]
  - FEELING OF BODY TEMPERATURE CHANGE [None]
  - TUBERCULOSIS [None]
  - LUNG INFECTION [None]
  - COUGH [None]
  - CARDIAC VALVE DISEASE [None]
  - INITIAL INSOMNIA [None]
  - PYREXIA [None]
